FAERS Safety Report 11342815 (Version 1)
Quarter: 2015Q3

REPORT INFORMATION
  Report Type: Spontaneous
  Country: JP (occurrence: JP)
  Receive Date: 20150805
  Receipt Date: 20150805
  Transmission Date: 20151125
  Serious: Yes (Death)
  Sender: FDA-Public Use
  Company Number: JP-ROCHE-1611498

PATIENT
  Age: 7 Decade
  Sex: Female

DRUGS (6)
  1. HERCEPTIN [Suspect]
     Active Substance: TRASTUZUMAB
     Indication: BREAST CANCER
     Dosage: DOSAGE IS UNCERTAIN.
     Route: 041
  2. DOCETAXEL. [Suspect]
     Active Substance: DOCETAXEL
     Indication: BREAST CANCER
     Dosage: DOSAGE IS UNCERTAIN.
     Route: 041
  3. GIMERACIL/OTERACIL POTASSIUM/TEGAFUR [Suspect]
     Active Substance: GIMERACIL\OTERACIL\TEGAFUR
     Indication: BREAST CANCER
     Dosage: DOSAGE IS UNCERTAIN.
     Route: 048
  4. PERJETA [Suspect]
     Active Substance: PERTUZUMAB
     Indication: BREAST CANCER
     Dosage: DOSAGE IS UNCERTAIN, FORM STRENGTH - 420MG/14ML
     Route: 041
  5. MEDROXYPROGESTERONE ACETATE. [Concomitant]
     Active Substance: MEDROXYPROGESTERONE ACETATE
     Dosage: DOSAGE IS UNCERTAIN.
     Route: 048
  6. CARBOPLATIN. [Concomitant]
     Active Substance: CARBOPLATIN

REACTIONS (2)
  - Breast cancer [Fatal]
  - Dacryostenosis acquired [Unknown]
